FAERS Safety Report 8530464 (Version 3)
Quarter: 2012Q4

REPORT INFORMATION
  Report Type: Report from Study
  Country: GB (occurrence: GB)
  Receive Date: 20120425
  Receipt Date: 20121129
  Transmission Date: 20130627
  Serious: Yes (Hospitalization)
  Sender: FDA-Public Use
  Company Number: GB-GENZYME-CAMP-1002177

PATIENT
  Sex: Female
  Weight: 57.5 kg

DRUGS (7)
  1. ALEMTUZUMAB [Suspect]
     Indication: MULTIPLE SCLEROSIS
     Dosage: 12 mg, qd
     Route: 042
     Dates: start: 20100315, end: 20100317
  2. ALEMTUZUMAB [Suspect]
     Dosage: 12 mg, qd
     Route: 042
     Dates: start: 20090316, end: 20090320
  3. RIZATRIPTAN [Concomitant]
     Indication: MIGRAINE
     Dosage: 30 mg, prn
     Route: 048
     Dates: start: 200403
  4. CITALOPRAM [Concomitant]
     Indication: ANXIETY
     Dosage: 20 mg, qd
     Route: 048
     Dates: start: 20080915
  5. INTRAUTERINE CONTRACEPTIVES [Concomitant]
     Indication: CONTRACEPTION
     Dosage: UNK
     Route: 015
     Dates: start: 20090308
  6. CARBIMAZOLE [Concomitant]
     Indication: HYPERTHYROIDISM
     Dosage: 10 mg, qd
     Route: 048
     Dates: start: 20120323
  7. PROPANOLOL [Concomitant]
     Indication: PRODUCT USED FOR UNKNOWN INDICATION
     Dosage: 40 mg, bid
     Route: 048

REACTIONS (1)
  - Peptic ulcer [Recovered/Resolved]
